FAERS Safety Report 13158259 (Version 3)
Quarter: 2017Q1

REPORT INFORMATION
  Report Type: Spontaneous
  Country: GR (occurrence: GR)
  Receive Date: 20170127
  Receipt Date: 20170213
  Transmission Date: 20170428
  Serious: Yes (Other)
  Sender: FDA-Public Use
  Company Number: GR-SA-2017SA011187

PATIENT
  Age: 61 Year
  Sex: Male

DRUGS (3)
  1. LANTUS SOLOSTAR [Suspect]
     Active Substance: INSULIN GLARGINE
     Dosage: DOSE:30 UNIT(S)
     Route: 058
     Dates: start: 2014
  2. COMPETACT [Concomitant]
     Active Substance: METFORMIN HYDROCHLORIDE\PIOGLITAZONE HYDROCHLORIDE
  3. SOLOSTAR [Concomitant]
     Active Substance: DEVICE
     Dates: start: 2014

REACTIONS (4)
  - Limb injury [Recovered/Resolved]
  - Therapeutic response unexpected [Unknown]
  - Intentional product misuse [Unknown]
  - Accident [Recovered/Resolved]

NARRATIVE: CASE EVENT DATE: 201701
